FAERS Safety Report 16117297 (Version 1)
Quarter: 2019Q2

REPORT INFORMATION
  Report Type: Spontaneous
  Country: US (occurrence: US)
  Receive Date: 20190325
  Receipt Date: 20190325
  Transmission Date: 20190711
  Serious: Yes (Other)
  Sender: FDA-Public Use
  Company Number: None

PATIENT
  Age: 25 Year
  Sex: Male
  Weight: 58.5 kg

DRUGS (3)
  1. DEXTROAMPHETAMINE 10MG [Suspect]
     Active Substance: DEXTROAMPHETAMINE
     Indication: ATTENTION DEFICIT/HYPERACTIVITY DISORDER
     Dosage: ?          QUANTITY:1 TABLET(S);?
     Route: 048
     Dates: start: 20190319, end: 20190322
  2. FINASTERIDE. [Concomitant]
     Active Substance: FINASTERIDE
  3. ATIVAN [Concomitant]
     Active Substance: LORAZEPAM

REACTIONS (4)
  - Palpitations [None]
  - Anxiety [None]
  - Body temperature increased [None]
  - Peripheral coldness [None]

NARRATIVE: CASE EVENT DATE: 20190325
